FAERS Safety Report 13020468 (Version 2)
Quarter: 2017Q3

REPORT INFORMATION
  Report Type: Report from Study
  Country: US (occurrence: US)
  Receive Date: 20161212
  Receipt Date: 20170803
  Transmission Date: 20171127
  Serious: Yes (Hospitalization)
  Sender: FDA-Public Use
  Company Number: US-ACTELION-A-NJ2016-146426

PATIENT
  Age: 42 Year
  Sex: Female
  Weight: 72.56 kg

DRUGS (2)
  1. OPSUMIT [Suspect]
     Active Substance: MACITENTAN
     Indication: PULMONARY ARTERIAL HYPERTENSION
     Dosage: 10 MG, QD
     Route: 048
     Dates: start: 20161007
  2. REVATIO [Concomitant]
     Active Substance: SILDENAFIL CITRATE

REACTIONS (12)
  - Fatigue [Unknown]
  - Dizziness [Unknown]
  - Vision blurred [Unknown]
  - Weight decreased [Unknown]
  - Eye disorder [Unknown]
  - Nausea [Unknown]
  - Cholecystectomy [Unknown]
  - Hypotension [Recovered/Resolved]
  - Perihepatic discomfort [Unknown]
  - Hyperhidrosis [Unknown]
  - Feeling abnormal [Unknown]
  - Menstruation irregular [Unknown]

NARRATIVE: CASE EVENT DATE: 201611
